FAERS Safety Report 5778060-5 (Version None)
Quarter: 2008Q2

REPORT INFORMATION
  Report Type: 
  Country: None (occurrence: None)
  Receive Date: 20080617
  Receipt Date: 20080606
  Transmission Date: 20081010
  Serious: Yes (Death)
  Sender: FDA-Public Use
  Company Number: 029077

PATIENT
  Age: 35 Year
  Sex: Female

DRUGS (5)
  1. METHOTREXATE [Suspect]
     Indication: GLIOBLASTOMA MULTIFORME
     Dosage: 12 G/M2, INTRAVENOUS
     Route: 042
  2. PHENOBARBITAL TAB [Concomitant]
  3. DEXAMETHASONE TAB [Concomitant]
  4. DEXTROSE INFUSION FLUID 5% (GLUCOSE) [Concomitant]
  5. SODIUM BICARBONATE IN PLASTIC CONTAINER [Concomitant]

REACTIONS (5)
  - BRAIN DEATH [None]
  - BRAIN HERNIATION [None]
  - INTRACRANIAL PRESSURE INCREASED [None]
  - NEUROTOXICITY [None]
  - UNRESPONSIVE TO STIMULI [None]
